FAERS Safety Report 8611318-0 (Version None)
Quarter: 2012Q3

REPORT INFORMATION
  Report Type: 
  Country: None (occurrence: None)
  Receive Date: 20120822
  Receipt Date: 20120817
  Transmission Date: 20120928
  Serious: Yes (Other)
  Sender: FDA-Public Use
  Company Number: US-PFIZER INC-2012202121

PATIENT
  Sex: Male

DRUGS (2)
  1. FELDENE [Suspect]
     Dosage: UNK
     Dates: start: 19820101
  2. VIAGRA [Suspect]
     Dosage: UNK

REACTIONS (1)
  - PROSTATIC DISORDER [None]
